FAERS Safety Report 17890820 (Version 1)
Quarter: 2020Q2

REPORT INFORMATION
  Report Type: Spontaneous
  Country: PL (occurrence: PL)
  Receive Date: 20200612
  Receipt Date: 20200612
  Transmission Date: 20200714
  Serious: Yes (Other)
  Sender: FDA-Public Use
  Company Number: PL-BAUSCH-BL-2020-016556

PATIENT
  Age: 15 Year
  Sex: Female

DRUGS (5)
  1. DEXAMETHASONE. [Suspect]
     Active Substance: DEXAMETHASONE
     Indication: PRECURSOR B-LYMPHOBLASTIC LYMPHOMA RECURRENT
     Dosage: TREATMENT COURSE APPLIED IN WEEKS 1-4
     Route: 065
     Dates: start: 2016
  2. PEG/L-ASPARAGINASE [Suspect]
     Active Substance: PEGASPARGASE
     Indication: PRECURSOR B-LYMPHOBLASTIC LYMPHOMA RECURRENT
     Dosage: TREATMENT COURSE APPLIED IN WEEKS 1-4
     Route: 065
     Dates: start: 2016
  3. VINCRISTINE [Suspect]
     Active Substance: VINCRISTINE
     Indication: PRECURSOR B-LYMPHOBLASTIC LYMPHOMA RECURRENT
     Dosage: TREATMENT COURSE APPLIED IN WEEKS 1-4
     Route: 065
     Dates: start: 2016
  4. METHOTREXATE. [Suspect]
     Active Substance: METHOTREXATE
     Indication: PRECURSOR B-LYMPHOBLASTIC LYMPHOMA RECURRENT
     Dosage: TREATMENT COURSE APPLIED IN WEEKS 1-4
     Route: 037
     Dates: start: 2016
  5. CYTARABINE. [Suspect]
     Active Substance: CYTARABINE
     Indication: PRECURSOR B-LYMPHOBLASTIC LYMPHOMA RECURRENT
     Dosage: TREATMENT COURSE APPLIED IN WEEKS 1-4
     Route: 065
     Dates: start: 2016

REACTIONS (2)
  - Bradycardia [Unknown]
  - Pancreatitis [Unknown]

NARRATIVE: CASE EVENT DATE: 2016
